FAERS Safety Report 4470988-1 (Version None)
Quarter: 2004Q4

REPORT INFORMATION
  Report Type: 
  Country: None (occurrence: None)
  Receive Date: 20041011
  Receipt Date: 20041007
  Transmission Date: 20050328
  Serious: Yes (Death, Other)
  Sender: FDA-Public Use
  Company Number: US-MERCK-0410USA00882

PATIENT
  Age: 83 Year
  Sex: Female

DRUGS (12)
  1. ALBUTEROL AND IPRATROPIUM BROMIDE [Concomitant]
     Route: 065
  2. COLACE [Concomitant]
     Route: 065
  3. DOXEPIN HYDROCHLORIDE [Concomitant]
     Route: 065
  4. PEPCID [Concomitant]
     Route: 065
  5. LEVSIN PB [Concomitant]
     Route: 065
  6. LORAZEPAM [Concomitant]
     Route: 065
  7. MORPHINE [Concomitant]
     Route: 048
  8. ACTONEL [Concomitant]
     Route: 065
  9. VIOXX [Suspect]
     Indication: ARTHRITIS
     Route: 048
     Dates: start: 20040623, end: 20040902
  10. VIOXX [Suspect]
     Indication: PAIN
     Route: 048
     Dates: start: 20040623, end: 20040902
  11. ULTRAM [Concomitant]
     Route: 065
  12. STELAZINE [Concomitant]
     Route: 065

REACTIONS (5)
  - CARDIO-RESPIRATORY ARREST [None]
  - CEREBROVASCULAR ACCIDENT [None]
  - CHRONIC OBSTRUCTIVE AIRWAYS DISEASE [None]
  - SEPSIS [None]
  - URINARY TRACT INFECTION [None]
